FAERS Safety Report 8218043-9 (Version None)
Quarter: 2012Q1

REPORT INFORMATION
  Report Type: 
  Country: None (occurrence: None)
  Receive Date: 20120319
  Receipt Date: 20120313
  Transmission Date: 20120608
  Serious: Yes (Other)
  Sender: FDA-Public Use
  Company Number: US-PFIZER INC-2012068040

PATIENT
  Age: 41 Year
  Sex: Male

DRUGS (19)
  1. VASOTEC [Concomitant]
     Dosage: 20 MG
  2. VICODIN [Concomitant]
     Dosage: 5-500 MG PER TABLET
  3. ROFLUMILAST [Concomitant]
     Dosage: 500 MCG
  4. TENORMIN [Concomitant]
     Dosage: 50 MG
  5. ACTOS [Concomitant]
     Dosage: 45 MG
  6. POTASSIUM CHLORIDE [Concomitant]
     Dosage: 20 MEQ
  7. SITAGLIPTIN AND METFORMIN HYDROCHLORIDE [Concomitant]
     Dosage: 50-1000 MG PER
  8. ELAVIL [Concomitant]
     Dosage: 50 MG
  9. GLUCOPHAGE [Concomitant]
     Dosage: 1000 MG
  10. FLEXERIL [Concomitant]
     Dosage: 10 MG
  11. LYRICA [Suspect]
     Dosage: 100 MG
  12. HYDRODIURIL [Concomitant]
     Dosage: 25 MG
  13. LIPITOR [Concomitant]
     Dosage: 40 MG
  14. PRAVACHOL [Concomitant]
     Dosage: 40 MG
  15. ACCURETIC [Suspect]
     Dosage: 20-12.5 MG PER TABLET
  16. VITAMIN B-12 [Concomitant]
     Dosage: 2500 MCG
     Route: 060
  17. VENTOLIN [Concomitant]
     Dosage: 90 MCG/ACTUATION INHALER
  18. ZYRTEC [Concomitant]
     Dosage: 10 MG
  19. IBUPROFEN (ADVIL) [Concomitant]
     Dosage: 800 MG

REACTIONS (17)
  - RHINITIS ALLERGIC [None]
  - NEUROPATHY PERIPHERAL [None]
  - BACK PAIN [None]
  - ESSENTIAL HYPERTENSION [None]
  - SLEEP APNOEA SYNDROME [None]
  - BLOOD CHOLESTEROL INCREASED [None]
  - INSOMNIA [None]
  - SYSTEMIC LUPUS ERYTHEMATOSUS [None]
  - BENIGN PROSTATIC HYPERPLASIA [None]
  - PAIN IN EXTREMITY [None]
  - CHRONIC OBSTRUCTIVE PULMONARY DISEASE [None]
  - HYPOKALAEMIA [None]
  - DIARRHOEA [None]
  - TYPE 2 DIABETES MELLITUS [None]
  - VITAMIN B12 DEFICIENCY [None]
  - HYPOGONADISM MALE [None]
  - HEADACHE [None]
